FAERS Safety Report 16706916 (Version 1)
Quarter: 2019Q3

REPORT INFORMATION
  Report Type: Spontaneous
  Country: US (occurrence: US)
  Receive Date: 20190629
  Receipt Date: 20190629
  Transmission Date: 20191004
  Serious: No
  Sender: FDA-Public Use
  Company Number: None

PATIENT
  Age: 37 Year
  Sex: Male

DRUGS (1)
  1. HUMIRA [Suspect]
     Active Substance: ADALIMUMAB
     Indication: ANKYLOSING SPONDYLITIS
     Route: 058
     Dates: start: 20190131, end: 20190422

REACTIONS (1)
  - Hepatic enzyme increased [None]

NARRATIVE: CASE EVENT DATE: 201901
